FAERS Safety Report 10930620 (Version 1)
Quarter: 2015Q1

REPORT INFORMATION
  Report Type: Spontaneous
  Country: ZA (occurrence: ZA)
  Receive Date: 20150319
  Receipt Date: 20150319
  Transmission Date: 20150721
  Serious: Yes (Death)
  Sender: FDA-Public Use
  Company Number: ZA-GE HEALTHCARE MEDICAL DIAGNOSTICS-OMPQ-PR-1503S-0248

PATIENT
  Age: 20 Year
  Sex: Male

DRUGS (2)
  1. OMNIPAQUE [Suspect]
     Active Substance: IOHEXOL
     Indication: DIAGNOSTIC PROCEDURE
  2. OMNIPAQUE [Suspect]
     Active Substance: IOHEXOL
     Indication: PRODUCT USED FOR UNKNOWN INDICATION
     Route: 042
     Dates: start: 20150309, end: 20150309

REACTIONS (6)
  - Hyperhidrosis [Not Recovered/Not Resolved]
  - Seizure [Fatal]
  - Rash erythematous [Not Recovered/Not Resolved]
  - Incontinence [Not Recovered/Not Resolved]
  - Ocular hyperaemia [Not Recovered/Not Resolved]
  - Dyspnoea [Fatal]

NARRATIVE: CASE EVENT DATE: 20150309
